FAERS Safety Report 8438881-7 (Version None)
Quarter: 2012Q2

REPORT INFORMATION
  Report Type: 
  Country: None (occurrence: None)
  Receive Date: 20120615
  Receipt Date: 20120605
  Transmission Date: 20120825
  Serious: Yes (Hospitalization)
  Sender: FDA-Public Use
  Company Number: CA-JNJFOC-20120603316

PATIENT
  Sex: Male
  Weight: 96.16 kg

DRUGS (9)
  1. REMICADE [Suspect]
     Indication: PSORIATIC ARTHROPATHY
     Route: 042
     Dates: start: 20090505
  2. REMICADE [Suspect]
     Indication: PSORIASIS
     Route: 042
  3. OXYCODONE HCL [Concomitant]
     Indication: PAIN
     Route: 048
     Dates: start: 20120328
  4. AMITRIPTYLINE HCL [Concomitant]
     Indication: PAIN
     Route: 048
     Dates: start: 20120328
  5. REMICADE [Suspect]
     Route: 042
     Dates: start: 20120516
  6. REMICADE [Suspect]
     Route: 042
     Dates: start: 20120516
  7. AMITRIPTYLINE HCL [Concomitant]
     Indication: ANTIDEPRESSANT THERAPY
     Route: 048
     Dates: start: 20120328
  8. REMICADE [Suspect]
     Route: 042
     Dates: start: 20090505
  9. REMICADE [Suspect]
     Route: 042

REACTIONS (1)
  - INTERVERTEBRAL DISC PROTRUSION [None]
